FAERS Safety Report 6064465-4 (Version None)
Quarter: 2009Q1

REPORT INFORMATION
  Report Type: 
  Country: None (occurrence: None)
  Receive Date: 20090203
  Receipt Date: 20090203
  Transmission Date: 20090719
  Serious: Yes (Hospitalization)
  Sender: FDA-Public Use
  Company Number: None

PATIENT
  Age: 48 Year
  Sex: Male
  Weight: 78.6 kg

DRUGS (17)
  1. ATORVASTATIN CALCIUM [Suspect]
     Dosage: 40MG DAILY PO
     Route: 048
  2. ESCITALOPRAM [Concomitant]
  3. QUETIAPINE FUMARATE [Concomitant]
  4. FAMPRIDINE [Concomitant]
  5. CLONAZEPAM [Concomitant]
  6. TRAMADOL HYDROCHLORIDE AND ACETAMINOPHEN [Concomitant]
  7. AVONEX [Concomitant]
  8. PREDNISONE [Concomitant]
  9. CYCLOBENAZAPRINE [Concomitant]
  10. UROXATRAL [Concomitant]
  11. VESICARE [Concomitant]
  12. CITRACAL [Concomitant]
  13. METOPROLOL TARTRATE [Concomitant]
  14. LUNESTA [Concomitant]
  15. MULTI-VITAMIN [Concomitant]
  16. PRILOSEC [Concomitant]
  17. BACTRIM [Concomitant]

REACTIONS (6)
  - BLOOD CREATINE PHOSPHOKINASE INCREASED [None]
  - CHILLS [None]
  - HYPERHIDROSIS [None]
  - PYREXIA [None]
  - RENAL FAILURE [None]
  - TREATMENT NONCOMPLIANCE [None]
